FAERS Safety Report 10185883 (Version 1)
Quarter: 2014Q2

REPORT INFORMATION
  Report Type: Report from Study
  Country: AR (occurrence: AR)
  Receive Date: 20140521
  Receipt Date: 20140521
  Transmission Date: 20141212
  Serious: Yes (Hospitalization, Other)
  Sender: FDA-Public Use
  Company Number: PHHY2014AR061622

PATIENT
  Age: 67 Year
  Sex: Female

DRUGS (1)
  1. DIOVAN [Suspect]
     Indication: HYPERTENSION
     Dosage: 1 TABLET (160 MG), DAILY
     Route: 048

REACTIONS (4)
  - Gallbladder disorder [Recovering/Resolving]
  - Hypertension [Recovered/Resolved]
  - Hepatic steatosis [Unknown]
  - Pancreatic disorder [Unknown]
